FAERS Safety Report 9787115 (Version 2)
Quarter: 2014Q1

REPORT INFORMATION
  Report Type: Spontaneous
  Country: NL (occurrence: NL)
  Receive Date: 20131228
  Receipt Date: 20140107
  Transmission Date: 20141002
  Serious: Yes (Other)
  Sender: FDA-Public Use
  Company Number: NL-009507513-1312NLD011137

PATIENT
  Age: 25 Year
  Sex: Female

DRUGS (1)
  1. IMPLANON [Suspect]
     Indication: CONTRACEPTION
     Dosage: 1 DF PER TIME
     Route: 059
     Dates: start: 20120615

REACTIONS (2)
  - Abortion missed [Recovering/Resolving]
  - Pregnancy [Recovering/Resolving]
